FAERS Safety Report 5900507-1 (Version None)
Quarter: 2008Q3

REPORT INFORMATION
  Report Type: 
  Country: None (occurrence: None)
  Receive Date: 20080926
  Receipt Date: 20080915
  Transmission Date: 20090109
  Serious: Yes (Hospitalization, Other)
  Sender: FDA-Public Use
  Company Number: US-PFIZER INC-2008064251

PATIENT
  Sex: Female
  Weight: 83.9 kg

DRUGS (4)
  1. GEODON [Suspect]
     Indication: METABOLIC DISORDER
     Dates: start: 20010101
  2. GEODON [Suspect]
     Indication: HALLUCINATION
  3. GEODON [Suspect]
     Indication: DELUSION
  4. CITALOPRAM HYDROBROMIDE [Concomitant]

REACTIONS (3)
  - OXYGEN SATURATION [None]
  - PNEUMONIA [None]
  - SEPSIS [None]
